FAERS Safety Report 21322000 (Version 1)
Quarter: 2022Q3

REPORT INFORMATION
  Report Type: Spontaneous
  Country: US (occurrence: US)
  Receive Date: 20220912
  Receipt Date: 20220912
  Transmission Date: 20221027
  Serious: Yes (Other)
  Sender: FDA-Public Use
  Company Number: US-BRISTOL-MYERS SQUIBB COMPANY-2022-102109

PATIENT
  Age: 85 Year
  Sex: Male
  Weight: 81.6 kg

DRUGS (1)
  1. ELIQUIS [Suspect]
     Active Substance: APIXABAN
     Indication: Cerebrovascular accident prophylaxis
     Route: 048
     Dates: end: 2021

REACTIONS (1)
  - Gastrointestinal polyp haemorrhage [Unknown]

NARRATIVE: CASE EVENT DATE: 20210101
